FAERS Safety Report 8645879 (Version 2)
Quarter: 2014Q1

REPORT INFORMATION
  Report Type: Spontaneous
  Country: US (occurrence: None)
  Receive Date: 20120323
  Receipt Date: 20130305
  Transmission Date: 20141002
  Serious: Yes (Hospitalization, Other)
  Sender: FDA-Public Use
  Company Number: 163-21880-11093318

PATIENT
  Age: 63 Year
  Sex: Male
  Weight: 125.19 kg

DRUGS (14)
  1. REVLIMID [Suspect]
     Indication: PLASMA CELL MYELOMA
     Dosage: 25 MG, DAILY X 21 DAYS, PO
     Route: 048
     Dates: start: 200704, end: 2011
  2. ZOMETA (ZOLEDRONIC ACID) [Concomitant]
     Dosage: AS DIRECTED, UNK
  3. VITAMIN B12 [Concomitant]
  4. ZETIA (EZETIMIBE) [Concomitant]
  5. HYDRATION (OTHER THERAPEUTIC PRODUCTS) [Concomitant]
  6. ACIPHEX [Concomitant]
  7. LORAZEPAM [Concomitant]
  8. ASPIRIN (ACETYLSALICYLIC ACID) [Concomitant]
  9. FISH OIL (FISH OIL) [Concomitant]
  10. BYSTOLIC [Concomitant]
  11. VERAMYST (FLUTICASONE FUROATE) [Concomitant]
  12. HUMAN IMMUNOGLOBULIN G [Concomitant]
  13. HYDROCORTONE [Concomitant]
  14. CHOLESTEROL [Concomitant]

REACTIONS (7)
  - Renal failure acute [None]
  - Blood creatinine increased [None]
  - Diarrhoea [None]
  - Renal failure acute [None]
  - Pulmonary embolism [None]
  - Cerebrovascular accident [None]
  - Lactose intolerance [None]
